FAERS Safety Report 5420039-7 (Version None)
Quarter: 2007Q3

REPORT INFORMATION
  Report Type: 
  Country: None (occurrence: None)
  Receive Date: 20070815
  Receipt Date: 20070802
  Transmission Date: 20080115
  Serious: No
  Sender: FDA-Public Use
  Company Number: 2007-162385-NL

PATIENT
  Sex: Female

DRUGS (2)
  1. MIRTAZAPINE [Suspect]
     Dosage: DF
     Route: 048
  2. VENLAFAXINE HCL [Suspect]
     Dosage: DF

REACTIONS (1)
  - BENIGN INTRACRANIAL HYPERTENSION [None]
